FAERS Safety Report 16817427 (Version 2)
Quarter: 2019Q4

REPORT INFORMATION
  Report Type: Spontaneous
  Country: US (occurrence: US)
  Receive Date: 20190917
  Receipt Date: 20191002
  Transmission Date: 20200122
  Serious: Yes (Hospitalization, Other)
  Sender: FDA-Public Use
  Company Number: US-PFIZER INC-2019398111

PATIENT
  Age: 80 Year
  Sex: Female
  Weight: 62.13 kg

DRUGS (1)
  1. PREMARIN [Suspect]
     Active Substance: ESTROGENS, CONJUGATED
     Indication: HOT FLUSH
     Dosage: UNK, DAILY [0.625 - 1 A DAY]
     Dates: start: 1985

REACTIONS (5)
  - Insomnia [Unknown]
  - Malaise [Unknown]
  - Hot flush [Not Recovered/Not Resolved]
  - Neoplasm malignant [Unknown]
  - Emotional disorder [Unknown]

NARRATIVE: CASE EVENT DATE: 2016
